FAERS Safety Report 9709216 (Version 1)
Quarter: 2013Q4

REPORT INFORMATION
  Report Type: Spontaneous
  Country: US (occurrence: US)
  Receive Date: 20131125
  Receipt Date: 20131125
  Transmission Date: 20140711
  Serious: No
  Sender: FDA-Public Use
  Company Number: US-009507513-1311USA010623

PATIENT
  Sex: Female

DRUGS (2)
  1. OXYBUTYNIN [Suspect]
     Indication: HERPES ZOSTER
  2. GABAPENTIN [Suspect]
     Indication: HERPES ZOSTER

REACTIONS (1)
  - Drug ineffective for unapproved indication [Unknown]
